FAERS Safety Report 12578783 (Version 1)
Quarter: 2016Q3

REPORT INFORMATION
  Report Type: Report from Study
  Country: NL (occurrence: NL)
  Receive Date: 20160721
  Receipt Date: 20160721
  Transmission Date: 20161109
  Serious: Yes (Hospitalization)
  Sender: FDA-Public Use
  Company Number: NL-AMGEN-NLDSL2016091430

PATIENT
  Age: 67 Year
  Sex: Female

DRUGS (1)
  1. ARANESP [Suspect]
     Active Substance: DARBEPOETIN ALFA
     Indication: NEPHROGENIC ANAEMIA
     Dosage: 60 MUG (200 MCG/0.3 ML), Q6WK
     Route: 058

REACTIONS (4)
  - Feeling abnormal [Unknown]
  - Transfusion [Unknown]
  - Intentional product misuse [Unknown]
  - Fluid retention [Unknown]

NARRATIVE: CASE EVENT DATE: 20160712
